FAERS Safety Report 11886824 (Version 1)
Quarter: 2016Q1

REPORT INFORMATION
  Report Type: Spontaneous
  Country: US (occurrence: US)
  Receive Date: 20160104
  Receipt Date: 20160104
  Transmission Date: 20160526
  Serious: No
  Sender: FDA-Public Use
  Company Number: US-BAYER-2015-498809

PATIENT
  Sex: Female

DRUGS (4)
  1. CLARITIN [Suspect]
     Active Substance: LORATADINE
     Indication: SINUS DISORDER
  2. CLARITIN [Suspect]
     Active Substance: LORATADINE
     Indication: NASAL CONGESTION
  3. CLARITIN [Suspect]
     Active Substance: LORATADINE
     Indication: FOOD ALLERGY
  4. CLARITIN [Suspect]
     Active Substance: LORATADINE
     Indication: NASAL CONGESTION

REACTIONS (2)
  - Malaise [None]
  - Product use issue [Unknown]
